FAERS Safety Report 15221159 (Version 1)
Quarter: 2018Q3

REPORT INFORMATION
  Report Type: Spontaneous
  Country: GB (occurrence: GB)
  Receive Date: 20180731
  Receipt Date: 20180731
  Transmission Date: 20181010
  Serious: Yes (Death)
  Sender: FDA-Public Use
  Company Number: GB-BIOVITRUM-2018GB0887

PATIENT
  Age: 5 Year
  Sex: Female
  Weight: 20 kg

DRUGS (61)
  1. KETAMINE [Concomitant]
     Active Substance: KETAMINE
     Dates: start: 20170621, end: 20170625
  2. CLONIDINE. [Concomitant]
     Active Substance: CLONIDINE
     Dates: start: 20170615, end: 20170626
  3. ACICLOVIR [Concomitant]
     Active Substance: ACYCLOVIR
     Dates: start: 20170614, end: 20170629
  4. TUBERCULIN PURIFIED PROTEIN DERIVATIVE [Concomitant]
     Active Substance: TUBERCULIN PURIFIED PROTEIN DERIVATIVE
     Dates: start: 20170717
  5. MORPHINE SULFATE. [Concomitant]
     Active Substance: MORPHINE SULFATE
     Dates: start: 20170625, end: 20170626
  6. LIDOCAINE HYDROCHLORIDE. [Concomitant]
     Active Substance: LIDOCAINE HYDROCHLORIDE
     Dates: start: 20170623, end: 20170625
  7. MIDAZOLAM [Concomitant]
     Active Substance: MIDAZOLAM HYDROCHLORIDE
     Indication: ANTIFUNGAL PROPHYLAXIS
     Dates: start: 20170614, end: 20170622
  8. POTASSIUM CHLORIDE. [Concomitant]
     Active Substance: POTASSIUM CHLORIDE
     Dates: start: 20170616, end: 20170625
  9. PHENYTOIN. [Concomitant]
     Active Substance: PHENYTOIN
     Dates: start: 20170717
  10. MOVICOL [Concomitant]
     Active Substance: POLYETHYLENE GLYCOL 3350\POTASSIUM CHLORIDE\SODIUM BICARBONATE\SODIUM CHLORIDE
     Dates: start: 20170616, end: 20170627
  11. GELCLAIR [Concomitant]
     Indication: ANTIFUNGAL PROPHYLAXIS
     Dates: start: 20170628, end: 20170630
  12. MORPHINE SULFATE. [Concomitant]
     Active Substance: MORPHINE SULFATE
     Indication: ANTIFUNGAL PROPHYLAXIS
     Dates: start: 20170614, end: 20170619
  13. MORPHINE SULFATE. [Concomitant]
     Active Substance: MORPHINE SULFATE
     Dates: start: 20170623, end: 20170625
  14. LIDOCAINE HYDROCHLORIDE. [Concomitant]
     Active Substance: LIDOCAINE HYDROCHLORIDE
     Dates: start: 20170625, end: 20170626
  15. KINERET [Suspect]
     Active Substance: ANAKINRA
     Indication: EPILEPSY
     Route: 058
     Dates: start: 20180629, end: 20180630
  16. ONDANSETRON [Concomitant]
     Active Substance: ONDANSETRON
     Dates: start: 20170615, end: 20170615
  17. CHLORAL HYDRATE [Concomitant]
     Active Substance: CHLORAL HYDRATE
     Dates: start: 20170628, end: 20170628
  18. MEROPENEM. [Concomitant]
     Active Substance: MEROPENEM
     Indication: ABDOMINAL DISTENSION
     Dates: start: 20170629, end: 20170630
  19. VANCOMYCIN [Concomitant]
     Active Substance: VANCOMYCIN
     Dates: start: 20170628, end: 20170628
  20. PHENYTOIN. [Concomitant]
     Active Substance: PHENYTOIN
  21. MOVICOL [Concomitant]
     Active Substance: POLYETHYLENE GLYCOL 3350\POTASSIUM CHLORIDE\SODIUM BICARBONATE\SODIUM CHLORIDE
     Dates: start: 20170625, end: 20170626
  22. TUBERCULIN PURIFIED PROTEIN DERIVATIVE [Concomitant]
     Active Substance: TUBERCULIN PURIFIED PROTEIN DERIVATIVE
     Dates: start: 20170623, end: 20170623
  23. NYSTATIN. [Concomitant]
     Active Substance: NYSTATIN
     Dates: start: 20170717
  24. GELCLAIR [Concomitant]
     Dates: start: 20170625, end: 20170626
  25. LIDOCAINE HYDROCHLORIDE. [Concomitant]
     Active Substance: LIDOCAINE HYDROCHLORIDE
     Indication: ANTIFUNGAL PROPHYLAXIS
     Dates: start: 20170625, end: 20170630
  26. CLARITHROMYCIN. [Concomitant]
     Active Substance: CLARITHROMYCIN
     Dates: start: 20170614, end: 20170629
  27. CHLORHEXIDINE GLUCONATE. [Concomitant]
     Active Substance: CHLORHEXIDINE GLUCONATE
     Dates: start: 20170717
  28. MOVICOL [Concomitant]
     Active Substance: POLYETHYLENE GLYCOL 3350\POTASSIUM CHLORIDE\SODIUM BICARBONATE\SODIUM CHLORIDE
     Dates: start: 20170717
  29. NYSTATIN. [Concomitant]
     Active Substance: NYSTATIN
     Indication: ANTIFUNGAL PROPHYLAXIS
     Dates: start: 20170614, end: 20170630
  30. PROPOFOL LIPURO [Concomitant]
     Active Substance: PROPOFOL
     Dates: start: 20170623, end: 20170625
  31. LACTULOSE. [Concomitant]
     Active Substance: LACTULOSE
     Dates: start: 20170623, end: 20170625
  32. FENTANYL. [Concomitant]
     Active Substance: FENTANYL
     Dates: start: 20170618, end: 20170618
  33. PARACETAMOL [Concomitant]
     Active Substance: ACETAMINOPHEN
     Dates: start: 20170627, end: 20170630
  34. RANITIDINE. [Concomitant]
     Active Substance: RANITIDINE
     Dates: start: 20170614, end: 20170630
  35. CHLORHEXIDINE GLUCONATE. [Concomitant]
     Active Substance: CHLORHEXIDINE GLUCONATE
     Dates: start: 20170614, end: 20170630
  36. LEVETIRACETAM. [Concomitant]
     Active Substance: LEVETIRACETAM
     Dates: start: 20170614, end: 20170630
  37. PROPOFOL LIPURO [Concomitant]
     Active Substance: PROPOFOL
     Dates: start: 20170717
  38. MORPHINE SULFATE. [Concomitant]
     Active Substance: MORPHINE SULFATE
     Dates: start: 20170717
  39. ROCURONIUM [Concomitant]
     Active Substance: ROCURONIUM BROMIDE
     Dates: start: 20170627, end: 20170627
  40. RANITIDINE. [Concomitant]
     Active Substance: RANITIDINE
     Dates: start: 20170717
  41. LEVETIRACETAM. [Concomitant]
     Active Substance: LEVETIRACETAM
     Dates: start: 20170717
  42. METRONIDAZOLE. [Concomitant]
     Active Substance: METRONIDAZOLE
     Dates: start: 20170717
  43. NYSTATIN. [Concomitant]
     Active Substance: NYSTATIN
     Dates: start: 20170625, end: 20170626
  44. CASSIA [Concomitant]
     Dates: start: 20170617, end: 20170625
  45. PHOSPHATE [Concomitant]
     Active Substance: UNSPECIFIED INGREDIENT
     Dates: start: 20170616, end: 20170626
  46. PHENOBARBITAL. [Concomitant]
     Active Substance: PHENOBARBITAL
     Dates: start: 20170617, end: 20170619
  47. SODIUM CHLORIDE. [Concomitant]
     Active Substance: SODIUM CHLORIDE
     Dates: start: 20170625, end: 20170625
  48. TUBERCULIN PURIFIED PROTEIN DERIVATIVE [Concomitant]
     Active Substance: TUBERCULIN PURIFIED PROTEIN DERIVATIVE
     Dates: start: 20170625, end: 20170626
  49. PROPOFOL LIPURO [Concomitant]
     Active Substance: PROPOFOL
     Dates: start: 20170625, end: 20170626
  50. LACTULOSE. [Concomitant]
     Active Substance: LACTULOSE
     Dates: start: 20170717
  51. MIDAZOLAM [Concomitant]
     Active Substance: MIDAZOLAM HYDROCHLORIDE
     Dates: start: 20170625, end: 20170626
  52. PARALDEHYDE [Concomitant]
     Active Substance: PARALDEHYDE
     Indication: SEIZURE
     Dates: start: 20170625, end: 20170630
  53. SODIUM PICOSULFATE [Concomitant]
     Active Substance: SODIUM PICOSULFATE
     Dates: start: 20170625, end: 20170626
  54. METRONIDAZOLE. [Concomitant]
     Active Substance: METRONIDAZOLE
     Dates: start: 20170627, end: 20170629
  55. GELCLAIR [Concomitant]
     Dates: start: 20170717
  56. PROPOFOL LIPURO [Concomitant]
     Active Substance: PROPOFOL
     Indication: ANTIFUNGAL PROPHYLAXIS
     Dates: start: 20170618, end: 20170623
  57. LACTULOSE. [Concomitant]
     Active Substance: LACTULOSE
     Indication: ANTIFUNGAL PROPHYLAXIS
     Dates: start: 20170615, end: 20170625
  58. LACTULOSE. [Concomitant]
     Active Substance: LACTULOSE
     Dates: start: 20170625, end: 20170626
  59. LIDOCAINE HYDROCHLORIDE. [Concomitant]
     Active Substance: LIDOCAINE HYDROCHLORIDE
     Dates: start: 20170717
  60. MIDAZOLAM [Concomitant]
     Active Substance: MIDAZOLAM HYDROCHLORIDE
     Dates: start: 20170717
  61. MIDAZOLAM [Concomitant]
     Active Substance: MIDAZOLAM HYDROCHLORIDE
     Dates: start: 20170623, end: 20170625

REACTIONS (4)
  - Hyperventilation [Not Recovered/Not Resolved]
  - Blood pressure decreased [Not Recovered/Not Resolved]
  - Cardiac arrest [Fatal]
  - Body temperature increased [Not Recovered/Not Resolved]

NARRATIVE: CASE EVENT DATE: 20170626
